FAERS Safety Report 8996503 (Version 4)
Quarter: 2013Q2

REPORT INFORMATION
  Report Type: Spontaneous
  Country: US (occurrence: US)
  Receive Date: 20130104
  Receipt Date: 20130527
  Transmission Date: 20140414
  Serious: No
  Sender: FDA-Public Use
  Company Number: US-009507513-1301USA001159

PATIENT
  Age: 23 Year
  Sex: Female
  Weight: 50.34 kg

DRUGS (1)
  1. IMPLANON [Suspect]
     Indication: CONTRACEPTION
     Dosage: EVERY 3 YEARS
     Route: 059
     Dates: start: 20110620, end: 201209

REACTIONS (5)
  - Menstruation irregular [Not Recovered/Not Resolved]
  - Metrorrhagia [Unknown]
  - Device dislocation [Unknown]
  - Device difficult to use [Unknown]
  - Medical device complication [Unknown]
